FAERS Safety Report 16150107 (Version 1)
Quarter: 2019Q1

REPORT INFORMATION
  Report Type: Spontaneous
  Country: US (occurrence: US)
  Receive Date: 20181211
  Receipt Date: 20181211
  Transmission Date: 20190418
  Serious: Yes (Other)
  Sender: FDA-Public Use
  Company Number: None

PATIENT
  Age: 55 Year
  Weight: 56.7 kg

DRUGS (2)
  1. ESTRADIOL/ESTRIOL [Suspect]
     Active Substance: ESTRADIOL\ESTRIOL
  2. LIFE-FLO BIESTRO CARE (ESTRADIOL\ESTRIOL) [Suspect]
     Active Substance: ESTRADIOL\ESTRIOL
     Indication: MENOPAUSAL SYMPTOMS
     Dates: start: 20181201, end: 20181210

REACTIONS (6)
  - Hot flush [None]
  - Dizziness [None]
  - Therapeutic product ineffective [None]
  - Fatigue [None]
  - Product quality issue [None]
  - Prescription drug used without a prescription [None]

NARRATIVE: CASE EVENT DATE: 20181210
